FAERS Safety Report 20443218 (Version 5)
Quarter: 2022Q1

REPORT INFORMATION
  Report Type: Spontaneous
  Country: GB (occurrence: GB)
  Receive Date: 20220208
  Receipt Date: 20220316
  Transmission Date: 20220423
  Serious: Yes (Other)
  Sender: FDA-Public Use
  Company Number: GB-BAYER-2022A017348

PATIENT
  Age: 55 Year
  Sex: Female

DRUGS (1)
  1. MIRENA [Suspect]
     Active Substance: LEVONORGESTREL
     Indication: Heavy menstrual bleeding
     Dosage: 20?G/DAY
     Route: 015
     Dates: start: 20140110, end: 202108

REACTIONS (5)
  - Device breakage [Recovered/Resolved]
  - Device physical property issue [Recovered/Resolved]
  - Device difficult to use [Recovered/Resolved]
  - Complication of device removal [None]
  - Device use error [None]

NARRATIVE: CASE EVENT DATE: 20210801
